FAERS Safety Report 10498427 (Version 1)
Quarter: 2014Q4

REPORT INFORMATION
  Report Type: Spontaneous
  Country: US (occurrence: None)
  Receive Date: 20141003
  Receipt Date: 20141003
  Transmission Date: 20150528
  Serious: No
  Sender: FDA-Public Use
  Company Number: None

PATIENT
  Age: 36 Year
  Sex: Female
  Weight: 79.38 kg

DRUGS (1)
  1. SKYLA [Suspect]
     Active Substance: LEVONORGESTREL
     Dates: start: 20140903, end: 20140913

REACTIONS (3)
  - Hypersensitivity [None]
  - Urticaria [None]
  - Device allergy [None]

NARRATIVE: CASE EVENT DATE: 20140903
